FAERS Safety Report 9797973 (Version 1)
Quarter: 2014Q1

REPORT INFORMATION
  Report Type: Spontaneous
  Country: US (occurrence: None)
  Receive Date: 20140102
  Receipt Date: 20140102
  Transmission Date: 20141002
  Serious: Yes (Hospitalization)
  Sender: FDA-Public Use
  Company Number: None

PATIENT
  Age: 67 Year
  Sex: Male
  Weight: 80.9 kg

DRUGS (1)
  1. SULFAMETHOXAZOLE/TRIMETHOPRIM [Suspect]
     Indication: EAR INFECTION
     Dosage: 1 TAB, BID, PO
     Route: 048
     Dates: start: 20130920, end: 20130927

REACTIONS (3)
  - Serum sickness [None]
  - Rash [None]
  - Arthralgia [None]
